FAERS Safety Report 16037442 (Version 1)
Quarter: 2019Q1

REPORT INFORMATION
  Report Type: Spontaneous
  Country: US (occurrence: US)
  Receive Date: 20190305
  Receipt Date: 20190305
  Transmission Date: 20190418
  Serious: No
  Sender: FDA-Public Use
  Company Number: US-IMPAX LABORATORIES, LLC-2018-IPXL-03548

PATIENT
  Age: 67 Year
  Sex: Male
  Weight: 91 kg

DRUGS (4)
  1. RYTARY [Suspect]
     Active Substance: CARBIDOPA\LEVODOPA
     Dosage: 48.75/195 MG, ONE CAPSULE, FIVE TIMES A DAY (EVERY THREE HOURS)
     Route: 048
     Dates: start: 201810, end: 201810
  2. RYTARY [Suspect]
     Active Substance: CARBIDOPA\LEVODOPA
     Indication: PARKINSON^S DISEASE
     Dosage: 48.75/195MG, THREE CAPSULES THREE TIMES A DAY
     Route: 048
     Dates: end: 201810
  3. AMLODIPINE [Concomitant]
     Active Substance: AMLODIPINE BESYLATE
     Indication: HYPERTENSION
     Dosage: UNK
     Route: 065
  4. OLMESARTAN [Concomitant]
     Active Substance: OLMESARTAN
     Indication: HYPERTENSION
     Dosage: UNK
     Route: 065

REACTIONS (3)
  - Drug ineffective [Recovered/Resolved]
  - Fatigue [Recovered/Resolved]
  - Therapeutic response shortened [Recovered/Resolved]

NARRATIVE: CASE EVENT DATE: 20181023
